FAERS Safety Report 8977675 (Version 1)
Quarter: 2012Q4

REPORT INFORMATION
  Report Type: 
  Country: US (occurrence: US)
  Receive Date: 20121220
  Receipt Date: 20121220
  Transmission Date: 20130627
  Serious: Yes (Other)
  Sender: FDA-Public Use
  Company Number: US-ALLERGAN-1217541US

PATIENT
  Age: 57 Year
  Sex: Female

DRUGS (1)
  1. PREDNISOLONE [Suspect]
     Indication: EYE INFLAMMATION
     Dosage: UNK UNK, unknown
     Route: 061

REACTIONS (1)
  - Inflammation [Recovered/Resolved with Sequelae]
